FAERS Safety Report 5362663-6 (Version None)
Quarter: 2007Q2

REPORT INFORMATION
  Report Type: 
  Country: None (occurrence: None)
  Receive Date: 20070619
  Receipt Date: 20070608
  Transmission Date: 20071010
  Serious: Yes (Hospitalization, Other)
  Sender: FDA-Public Use
  Company Number: JP-PFIZER INC-2007020766

PATIENT
  Sex: Female
  Weight: 50 kg

DRUGS (2)
  1. PROVERA [Suspect]
     Indication: AMENORRHOEA
     Route: 048
     Dates: start: 20050531, end: 20060919
  2. PROVERA [Suspect]
     Route: 048

REACTIONS (2)
  - DYSTONIA [None]
  - MUSCLE ATROPHY [None]
